FAERS Safety Report 17130293 (Version 1)
Quarter: 2019Q4

REPORT INFORMATION
  Report Type: Spontaneous
  Country: US (occurrence: US)
  Receive Date: 20191209
  Receipt Date: 20191209
  Transmission Date: 20200122
  Serious: No
  Sender: FDA-Public Use
  Company Number: US-TARO-2019TAR00792

PATIENT
  Sex: Female

DRUGS (1)
  1. BETAMETHASONE VALERATE FOAM 0.12% [Suspect]
     Active Substance: BETAMETHASONE VALERATE
     Dosage: UNK
     Dates: start: 201911

REACTIONS (3)
  - Product quality issue [Not Recovered/Not Resolved]
  - Condition aggravated [Not Recovered/Not Resolved]
  - Product dose omission [Not Recovered/Not Resolved]

NARRATIVE: CASE EVENT DATE: 201911
